FAERS Safety Report 15928791 (Version 1)
Quarter: 2019Q1

REPORT INFORMATION
  Report Type: Spontaneous
  Country: US (occurrence: US)
  Receive Date: 20190206
  Receipt Date: 20190206
  Transmission Date: 20190417
  Serious: No
  Sender: FDA-Public Use
  Company Number: US-SA-2019SA028967

PATIENT
  Sex: Female

DRUGS (1)
  1. PLAVIX [Suspect]
     Active Substance: CLOPIDOGREL BISULFATE
     Dosage: 75 MG, QD
     Route: 048

REACTIONS (8)
  - Stomatitis [Unknown]
  - Pharyngeal oedema [Unknown]
  - Dysphonia [Unknown]
  - Product dose omission [Unknown]
  - Influenza [Unknown]
  - Goitre [Unknown]
  - Pulmonary mass [Unknown]
  - Eating disorder [Unknown]
